FAERS Safety Report 24632057 (Version 1)
Quarter: 2024Q4

REPORT INFORMATION
  Report Type: Spontaneous
  Country: FI (occurrence: FI)
  Receive Date: 20241118
  Receipt Date: 20241118
  Transmission Date: 20250115
  Serious: Yes (Hospitalization)
  Sender: SANOFI AVENTIS
  Company Number: FI-SA-2020SA009679

PATIENT
  Age: 58 Year
  Sex: Male

DRUGS (8)
  1. VALPROATE SODIUM [Interacting]
     Active Substance: VALPROATE SODIUM
     Indication: Bipolar disorder
     Dosage: 1800 MG, QD
  2. QUETIAPINE FUMARATE [Interacting]
     Active Substance: QUETIAPINE FUMARATE
     Indication: Bipolar disorder
     Dosage: 400 MG, QD
  3. OXALIPLATIN [Interacting]
     Active Substance: OXALIPLATIN
     Indication: Rectal cancer metastatic
  4. OXALIPLATIN [Interacting]
     Active Substance: OXALIPLATIN
     Indication: Metastases to lymph nodes
  5. OXALIPLATIN [Interacting]
     Active Substance: OXALIPLATIN
     Indication: Adjuvant therapy
  6. CAPECITABINE [Interacting]
     Active Substance: CAPECITABINE
     Indication: Rectal cancer metastatic
     Dosage: UNK
  7. CAPECITABINE [Interacting]
     Active Substance: CAPECITABINE
     Indication: Metastases to lymph nodes
  8. CAPECITABINE [Interacting]
     Active Substance: CAPECITABINE
     Indication: Adjuvant therapy

REACTIONS (7)
  - Speech disorder [Recovered/Resolved]
  - Toxicity to various agents [Recovered/Resolved]
  - Balance disorder [Recovered/Resolved]
  - Tremor [Recovered/Resolved]
  - Diplopia [Recovered/Resolved]
  - Fatigue [Recovered/Resolved]
  - Drug interaction [Unknown]
